FAERS Safety Report 5895678-X (Version None)
Quarter: 2008Q3

REPORT INFORMATION
  Report Type: 
  Country: None (occurrence: None)
  Receive Date: 20080828
  Receipt Date: 20070906
  Transmission Date: 20090109
  Serious: Yes (Hospitalization, Other)
  Sender: FDA-Public Use
  Company Number: 161005USA

PATIENT
  Sex: Female

DRUGS (1)
  1. LISINOPRIL [Suspect]
     Dosage: (10 MG), ORAL
     Route: 048
     Dates: start: 20070701, end: 20070831

REACTIONS (2)
  - LEUKOPENIA [None]
  - NEUTROPENIA [None]
